FAERS Safety Report 6710249-0 (Version None)
Quarter: 2010Q2

REPORT INFORMATION
  Report Type: 
  Country: None (occurrence: None)
  Receive Date: 20100430
  Receipt Date: 20100415
  Transmission Date: 20101027
  Serious: Yes (Other)
  Sender: FDA-Public Use
  Company Number: AUR-APL-2010-01175

PATIENT
  Age: 69 Year
  Sex: Female

DRUGS (5)
  1. ATENOLOL [Suspect]
     Dosage: 100MG
  2. LISINOPRIL [Suspect]
     Dosage: 20MG
  3. XANAX [Suspect]
     Dosage: 0.5MG,
  4. LIPITOR [Suspect]
     Dosage: 20MG,
  5. PLAVIX [Suspect]
     Dosage: 75MG,

REACTIONS (2)
  - PAIN IN EXTREMITY [None]
  - PARAESTHESIA [None]
